FAERS Safety Report 17134035 (Version 1)
Quarter: 2019Q4

REPORT INFORMATION
  Report Type: Spontaneous
  Country: FR (occurrence: FR)
  Receive Date: 20191210
  Receipt Date: 20191210
  Transmission Date: 20200122
  Serious: Yes (Other)
  Sender: FDA-Public Use
  Company Number: FR-TEVA-2019-FR-1148217

PATIENT
  Age: 73 Year
  Sex: Male
  Weight: 66 kg

DRUGS (1)
  1. ROSUVASTATIN. [Suspect]
     Active Substance: ROSUVASTATIN
     Indication: CARDIOVASCULAR EVENT PROPHYLAXIS
     Dosage: 5 MG PER DAY
     Route: 048
     Dates: start: 20190723, end: 20190726

REACTIONS (2)
  - Papule [Recovered/Resolved]
  - Blister [Recovered/Resolved]

NARRATIVE: CASE EVENT DATE: 20190723
